FAERS Safety Report 10881257 (Version 2)
Quarter: 2015Q2

REPORT INFORMATION
  Report Type: Spontaneous
  Country: US (occurrence: US)
  Receive Date: 20150303
  Receipt Date: 20150605
  Transmission Date: 20150821
  Serious: Yes (Hospitalization)
  Sender: FDA-Public Use
  Company Number: US-PFIZER INC-2015077132

PATIENT
  Age: 67 Year
  Sex: Male
  Weight: 79 kg

DRUGS (6)
  1. MELATONIN [Concomitant]
     Active Substance: MELATONIN
     Indication: INSOMNIA
     Dosage: 12 MG, DAILY
     Dates: start: 20140314
  2. GABAPENTIN. [Suspect]
     Active Substance: GABAPENTIN
     Indication: PAIN IN EXTREMITY
     Dosage: UNK
     Dates: start: 201410, end: 201411
  3. NORTRIPTYLINE [Concomitant]
     Active Substance: NORTRIPTYLINE
     Dosage: UNK, 1X/DAY (AT NIGHT WHEN HE WENT TO BED)
     Dates: start: 201412
  4. GABAPENTIN. [Suspect]
     Active Substance: GABAPENTIN
     Indication: MUSCLE SPASMS
  5. VALERIAN ROOT [Concomitant]
     Active Substance: VALERIAN
     Indication: INSOMNIA
     Dosage: 250 MG, UNK
     Dates: start: 20140314
  6. ATIVAN [Concomitant]
     Active Substance: LORAZEPAM
     Dosage: ^1 MG HOUR OR 2 BEFORE BEDTIME^
     Dates: start: 20140314

REACTIONS (3)
  - Drug ineffective [Not Recovered/Not Resolved]
  - Balance disorder [Not Recovered/Not Resolved]
  - Dizziness [Not Recovered/Not Resolved]

NARRATIVE: CASE EVENT DATE: 201410
